FAERS Safety Report 13778549 (Version 1)
Quarter: 2017Q3

REPORT INFORMATION
  Report Type: Report from Study
  Country: US (occurrence: US)
  Receive Date: 20170721
  Receipt Date: 20170721
  Transmission Date: 20171127
  Serious: Yes (Hospitalization, Other)
  Sender: FDA-Public Use
  Company Number: US-ACTELION-A-NJ2016-147294

PATIENT
  Age: 69 Year
  Sex: Female

DRUGS (2)
  1. OPSUMIT [Suspect]
     Active Substance: MACITENTAN
     Indication: PULMONARY ARTERIAL HYPERTENSION
     Dosage: UNK
     Route: 048
     Dates: start: 20161003
  2. AMBRISENTAN [Concomitant]
     Active Substance: AMBRISENTAN
     Dosage: UNK
     Dates: start: 201307

REACTIONS (18)
  - Biliary cirrhosis primary [Recovered/Resolved with Sequelae]
  - Biopsy liver [Unknown]
  - Chills [Recovered/Resolved]
  - Myalgia [Recovered/Resolved]
  - Sepsis [Recovered/Resolved]
  - Sinus congestion [Recovered/Resolved]
  - Pyrexia [Recovered/Resolved]
  - Hyperhidrosis [Recovered/Resolved]
  - Pruritus [Recovered/Resolved with Sequelae]
  - Nasal congestion [Recovered/Resolved]
  - Systemic inflammatory response syndrome [Recovered/Resolved]
  - Urinary tract infection [Recovered/Resolved]
  - Flank pain [Recovered/Resolved]
  - Pneumonia [Recovered/Resolved]
  - Dysuria [Recovered/Resolved]
  - Cough [Recovered/Resolved]
  - Arthralgia [Recovered/Resolved]
  - Transaminases increased [Recovered/Resolved with Sequelae]

NARRATIVE: CASE EVENT DATE: 2016
